FAERS Safety Report 13966173 (Version 8)
Quarter: 2018Q3

REPORT INFORMATION
  Report Type: Report from Study
  Country: DE (occurrence: DE)
  Receive Date: 20170913
  Receipt Date: 20180830
  Transmission Date: 20181010
  Serious: Yes (Death, Hospitalization, Other)
  Sender: FDA-Public Use
  Company Number: PHHY2017DE097534

PATIENT
  Age: 76 Year
  Sex: Male
  Weight: 78 kg

DRUGS (5)
  1. ZOFRAN [Concomitant]
     Active Substance: ONDANSETRON HYDROCHLORIDE
     Indication: PROPHYLAXIS
     Dosage: 8 MG, QD, 1?0?0 (DAY 1 ? 7, REPETITION DAY 29)
     Route: 065
     Dates: start: 20161219
  2. VIDAZA [Concomitant]
     Active Substance: AZACITIDINE
     Indication: PRODUCT USED FOR UNKNOWN INDICATION
     Dosage: 145 MG, QD (DAY 1 TO 7, REPETITION DAY 29)
     Route: 065
     Dates: start: 20161219, end: 20170516
  3. EXJADE [Suspect]
     Active Substance: DEFERASIROX
     Indication: IRON OVERLOAD
     Dosage: 4.6 MG/KG, (1 TABLET 360 MG)
     Route: 065
     Dates: start: 20170123, end: 20170316
  4. EXJADE [Suspect]
     Active Substance: DEFERASIROX
     Dosage: 9.23 MG/KG, (2 TABLETS 360 MG)
     Route: 065
     Dates: start: 20170317, end: 20170727
  5. DECITABINE. [Concomitant]
     Active Substance: DECITABINE
     Indication: PRODUCT USED FOR UNKNOWN INDICATION
     Dosage: UNK (DAY 1 TO 5, REPETITION DAY 28)
     Route: 065
     Dates: start: 20170703

REACTIONS (22)
  - Fall [Fatal]
  - Blast cell count increased [Fatal]
  - Oral candidiasis [Fatal]
  - Neutropenia [Fatal]
  - Nausea [Fatal]
  - Anaemia [Fatal]
  - Pyrexia [Fatal]
  - Disease complication [Fatal]
  - Subileus [Fatal]
  - Anaemia of malignant disease [Recovered/Resolved]
  - Internal haemorrhage [Fatal]
  - Thrombocytopenia [Fatal]
  - Acute kidney injury [Fatal]
  - Neoplasm progression [Fatal]
  - Pain in extremity [Fatal]
  - Escherichia bacteraemia [Fatal]
  - Hypokalaemia [Fatal]
  - Infection [Fatal]
  - Blast cells present [Fatal]
  - Neutrophil count decreased [Fatal]
  - Hyponatraemia [Fatal]
  - White blood cell count decreased [Fatal]

NARRATIVE: CASE EVENT DATE: 20170524
